FAERS Safety Report 18695273 (Version 2)
Quarter: 2021Q1

REPORT INFORMATION
  Report Type: Spontaneous
  Country: BR (occurrence: BR)
  Receive Date: 20210104
  Receipt Date: 20210105
  Transmission Date: 20210419
  Serious: Yes (Other)
  Sender: FDA-Public Use
  Company Number: BR-PFIZER INC-2020515507

PATIENT
  Age: 55 Year
  Sex: Female

DRUGS (2)
  1. DIACEREIN [Concomitant]
     Active Substance: DIACEREIN
     Dosage: UNK
  2. LYRICA [Suspect]
     Active Substance: PREGABALIN
     Dosage: UNK

REACTIONS (2)
  - Abdominal infection [Unknown]
  - Somnolence [Unknown]
